FAERS Safety Report 6074694-1 (Version None)
Quarter: 2009Q1

REPORT INFORMATION
  Report Type: 
  Country: None (occurrence: None)
  Receive Date: 20090209
  Receipt Date: 20090209
  Transmission Date: 20090719
  Serious: Yes (Other)
  Sender: FDA-Public Use
  Company Number: None

PATIENT
  Sex: Male
  Weight: 74.8435 kg

DRUGS (1)
  1. VYTORIN [Suspect]
     Indication: BLOOD CHOLESTEROL INCREASED
     Dosage: 1 PERDAY ORAL 4-6 MONTHS
     Route: 048

REACTIONS (4)
  - CONVULSION [None]
  - DRUG DOSE OMISSION [None]
  - GRAND MAL CONVULSION [None]
  - PETIT MAL EPILEPSY [None]
